FAERS Safety Report 9518558 (Version 2)
Quarter: 2013Q3

REPORT INFORMATION
  Report Type: Report from Study
  Country: DE (occurrence: DE)
  Receive Date: 20130912
  Receipt Date: 20130912
  Transmission Date: 20140515
  Serious: Yes (Hospitalization)
  Sender: FDA-Public Use
  Company Number: PHHY2013DE016426

PATIENT
  Age: 68 Year
  Sex: Female

DRUGS (6)
  1. EXELON PATCH [Suspect]
     Indication: DEMENTIA
     Dosage: 9.5 MG/DAY
     Route: 062
     Dates: start: 201110
  2. EXELON PATCH [Suspect]
     Indication: SCHIZOPHRENIA
  3. EXELON PATCH [Suspect]
     Indication: PARKINSON^S DISEASE
  4. AXURA [Concomitant]
     Dosage: UNK UKN, UNK
  5. RISPERIDON [Concomitant]
     Dosage: UNK UKN, UNK
  6. BIPERIDEN [Concomitant]
     Dosage: UNK UKN, UNK

REACTIONS (9)
  - Restlessness [Not Recovered/Not Resolved]
  - Aphagia [Recovering/Resolving]
  - Balance disorder [Not Recovered/Not Resolved]
  - Sleep disorder [Not Recovered/Not Resolved]
  - Inappropriate schedule of drug administration [Not Recovered/Not Resolved]
  - Weight decreased [Not Recovered/Not Resolved]
  - Abasia [Not Recovered/Not Resolved]
  - Pruritus [Not Recovered/Not Resolved]
  - Dementia [Not Recovered/Not Resolved]
